FAERS Safety Report 10616845 (Version 1)
Quarter: 2014Q4

REPORT INFORMATION
  Report Type: Spontaneous
  Country: JP (occurrence: JP)
  Receive Date: 20141201
  Receipt Date: 20141201
  Transmission Date: 20150529
  Serious: Yes (Other)
  Sender: FDA-Public Use
  Company Number: JP-TEVA-525553ISR

PATIENT
  Age: 46 Year
  Sex: Male

DRUGS (2)
  1. TRISENOX [Suspect]
     Active Substance: ARSENIC TRIOXIDE
     Dates: start: 20140526, end: 20140528
  2. TRISENOX [Suspect]
     Active Substance: ARSENIC TRIOXIDE
     Dates: start: 20140601, end: 20140630

REACTIONS (1)
  - Electrocardiogram ST segment depression [Not Recovered/Not Resolved]

NARRATIVE: CASE EVENT DATE: 20140529
